FAERS Safety Report 22295818 (Version 1)
Quarter: 2023Q2

REPORT INFORMATION
  Report Type: Spontaneous
  Country: GB (occurrence: GB)
  Receive Date: 20230508
  Receipt Date: 20230508
  Transmission Date: 20230722
  Serious: Yes (Hospitalization)
  Sender: FDA-Public Use
  Company Number: GB-ROCHE-3332409

PATIENT
  Age: 48 Year
  Weight: 85.4 kg

DRUGS (5)
  1. DOXORUBICIN HYDROCHLORIDE [Suspect]
     Active Substance: DOXORUBICIN HYDROCHLORIDE
     Indication: Follicular lymphoma
     Dosage: CYCLE NUMBER 1, DATE OF LAST ADMINISTRATION WAS 15/DEC/2022.
     Route: 065
     Dates: start: 20221215
  2. VINCRISTINE SULFATE [Suspect]
     Active Substance: VINCRISTINE SULFATE
     Indication: Follicular lymphoma
     Dosage: CYCLE NUMBER 1, DATE OF LAST ADMINISTRATION WAS 15/DEC/2022.
     Route: 065
     Dates: start: 20221215
  3. CYCLOPHOSPHAMIDE [Suspect]
     Active Substance: CYCLOPHOSPHAMIDE
     Indication: Follicular lymphoma
     Dosage: CYCLE NUMBER 1, DATE OF LAST ADMINISTRATION WAS 15/DEC/2022.
     Route: 065
     Dates: start: 20221215
  4. PREDNISONE [Suspect]
     Active Substance: PREDNISONE
     Indication: Follicular lymphoma
     Dosage: CYCLE NUMBER 1, DATE OF LAST ADMINISTRATION WAS 15/DEC/2022.
     Route: 065
     Dates: start: 20221215
  5. RITUXIMAB [Suspect]
     Active Substance: RITUXIMAB
     Indication: Follicular lymphoma
     Dosage: CYCLE NUMBER 1, DATE OF LAST ADMINISTRATION WAS 15/DEC/2022.
     Route: 065
     Dates: start: 20221215

REACTIONS (1)
  - Hypervolaemia [Not Recovered/Not Resolved]

NARRATIVE: CASE EVENT DATE: 20221228
